FAERS Safety Report 19170836 (Version 2)
Quarter: 2021Q2

REPORT INFORMATION
  Report Type: Spontaneous
  Country: IT (occurrence: IT)
  Receive Date: 20210422
  Receipt Date: 20210430
  Transmission Date: 20210717
  Serious: Yes (Life-Threatening, Other)
  Sender: FDA-Public Use
  Company Number: IT-SA-2021SA129835

PATIENT
  Age: 68 Year
  Sex: Male
  Weight: 100 kg

DRUGS (10)
  1. PANITUMUMAB [Suspect]
     Active Substance: PANITUMUMAB
     Indication: METASTASES TO LUNG
     Dosage: 100 MG, QCY
     Route: 042
     Dates: start: 20210323, end: 20210412
  2. OXALIPLATIN. [Suspect]
     Active Substance: OXALIPLATIN
     Indication: METASTASES TO LUNG
     Dosage: 140 MG, QCY
     Route: 042
     Dates: start: 20210323, end: 20210412
  3. CARDIRENE [Concomitant]
     Active Substance: ASPIRIN DL-LYSINE
     Dosage: 75 MG
     Route: 048
  4. VECTIBIX [Suspect]
     Active Substance: PANITUMUMAB
     Indication: METASTASES TO LUNG
     Dosage: 400 MG, QCY
     Route: 042
     Dates: start: 20210323, end: 20210412
  5. COVID?19 VACCINE NOS. [Concomitant]
     Active Substance: COVID-19 VACCINE NOS
     Indication: COVID-19 IMMUNISATION
     Dosage: 0.3 ML
     Route: 030
     Dates: start: 20210407, end: 20210407
  6. CALCIUM LEVOFOLINATE [Suspect]
     Active Substance: LEVOLEUCOVORIN CALCIUM
     Indication: METASTASES TO LUNG
     Dosage: 350 MG, QCY
     Route: 042
     Dates: start: 20210323, end: 20210412
  7. LOBIDIUR [Concomitant]
     Active Substance: HYDROCHLOROTHIAZIDE\NEBIVOLOL HYDROCHLORIDE
     Dosage: 5 MG
     Route: 048
  8. ZOPRANOL [Concomitant]
     Active Substance: ZOFENOPRIL
     Dosage: 30 MG
     Route: 048
  9. MINOCIN [Concomitant]
     Active Substance: MINOCYCLINE HYDROCHLORIDE
     Dosage: 100 MG
     Route: 048
     Dates: start: 20210323, end: 20210412
  10. VECTIBIX [Suspect]
     Active Substance: PANITUMUMAB
     Dosage: 100 MG
     Route: 042
     Dates: start: 20210323, end: 20210412

REACTIONS (4)
  - Hypotension [Unknown]
  - Acute myocardial infarction [Unknown]
  - Bradycardia [Unknown]
  - Oxygen saturation decreased [Unknown]

NARRATIVE: CASE EVENT DATE: 20210412
